FAERS Safety Report 11778785 (Version 1)
Quarter: 2015Q4

REPORT INFORMATION
  Report Type: Report from Study
  Country: US (occurrence: US)
  Receive Date: 20151125
  Receipt Date: 20151125
  Transmission Date: 20160304
  Serious: Yes (Hospitalization)
  Sender: FDA-Public Use
  Company Number: GXBR2015US002597

PATIENT
  Sex: Male

DRUGS (9)
  1. ALBUTEROL. [Concomitant]
     Active Substance: ALBUTEROL
     Indication: BRONCHIAL HYPERREACTIVITY
     Dosage: UNK DF, UNK
     Route: 065
  2. TYLENOL [Concomitant]
     Active Substance: ACETAMINOPHEN
     Indication: PRODUCT USED FOR UNKNOWN INDICATION
     Dosage: UNK DF, UNK
     Route: 065
  3. ZINC OXIDE. [Concomitant]
     Active Substance: ZINC OXIDE
     Indication: DERMATITIS DIAPER
     Dosage: UNK DF, UNK
     Route: 065
  4. MELATONIN [Concomitant]
     Active Substance: MELATONIN
     Indication: PRODUCT USED FOR UNKNOWN INDICATION
     Dosage: UNK DF, UNK
     Route: 065
  5. AQUAPHOR                                /USA/ [Concomitant]
     Indication: ECZEMA
     Dosage: UNK DF, UNK
     Route: 065
  6. OMNITROPE [Suspect]
     Active Substance: SOMATROPIN
     Indication: DWARFISM
     Dosage: 0.4 MG, QD
     Route: 065
     Dates: start: 201404, end: 20151008
  7. ELOCON [Concomitant]
     Active Substance: MOMETASONE FUROATE
     Indication: ECZEMA
     Dosage: UNK DF, UNK
     Route: 065
  8. KENALOG                            /00806701/ [Concomitant]
     Active Substance: SALICYLIC ACID\TRIAMCINOLONE ACETONIDE
     Indication: ECZEMA
     Dosage: UNK DF, UNK
     Route: 065
  9. CIPRODEX                           /03061501/ [Concomitant]
     Indication: PRODUCT USED FOR UNKNOWN INDICATION
     Dosage: UNK DF, UNK
     Route: 065

REACTIONS (1)
  - Femur fracture [Not Recovered/Not Resolved]
